FAERS Safety Report 7035011-3 (Version None)
Quarter: 2010Q4

REPORT INFORMATION
  Report Type: 
  Country: None (occurrence: None)
  Receive Date: 20101008
  Receipt Date: 20101004
  Transmission Date: 20110411
  Serious: Yes (Hospitalization)
  Sender: FDA-Public Use
  Company Number: ES-ROCHE-730900

PATIENT
  Age: 31 Year
  Sex: Female

DRUGS (5)
  1. RIVOTRIL [Suspect]
     Dosage: 0.5MG IN THE MORNING AND NOON, 2 MG AT NIGHT
     Route: 065
  2. CARBAMAZEPINE [Suspect]
     Route: 065
  3. PERFENAZINE [Suspect]
     Route: 065
  4. HALOPERIDOL [Suspect]
     Route: 065
  5. FLURAZEPAM [Suspect]
     Route: 065

REACTIONS (2)
  - HYPONATRAEMIA [None]
  - NEUROLEPTIC MALIGNANT SYNDROME [None]
